FAERS Safety Report 16961605 (Version 1)
Quarter: 2019Q4

REPORT INFORMATION
  Report Type: Spontaneous
  Country: US (occurrence: US)
  Receive Date: 20190906
  Receipt Date: 20190906
  Transmission Date: 20200122
  Serious: No
  Sender: FDA-Public Use
  Company Number: None

PATIENT
  Age: 68 Year
  Sex: Male

DRUGS (1)
  1. REVLIMID [Suspect]
     Active Substance: LENALIDOMIDE
     Indication: PLASMA CELL MYELOMA
     Route: 048
     Dates: start: 201903, end: 20190820

REACTIONS (4)
  - Rash pruritic [None]
  - Rash papular [None]
  - Exfoliative rash [None]
  - Rash erythematous [None]

NARRATIVE: CASE EVENT DATE: 20190822
